FAERS Safety Report 8114557-0 (Version None)
Quarter: 2012Q1

REPORT INFORMATION
  Report Type: 
  Country: None (occurrence: None)
  Receive Date: 20120206
  Receipt Date: 20120206
  Transmission Date: 20120608
  Serious: Yes (Other)
  Sender: FDA-Public Use
  Company Number: US-PFIZER INC-2011077463

PATIENT
  Sex: Female
  Weight: 46 kg

DRUGS (15)
  1. SEROQUEL [Concomitant]
     Indication: SLEEP DISORDER
     Dosage: 300 MG DAILY
     Route: 048
  2. LAMICTAL [Concomitant]
     Indication: ANXIETY
     Dosage: 100 MG, 2X/DAY
     Route: 048
  3. SEROQUEL [Concomitant]
     Indication: DEPRESSION
  4. LAMICTAL [Concomitant]
     Indication: DEPRESSION
  5. EFFEXOR XR [Suspect]
     Indication: DEPRESSION
     Dosage: 150 MG, 1X/DAY
  6. VENLAFAXINE HCL [Suspect]
     Indication: ANXIETY
     Dosage: 75 MG DAILY
     Route: 048
     Dates: start: 20110320
  7. SEROQUEL [Concomitant]
     Indication: ANXIETY
  8. LEXAPRO [Concomitant]
     Indication: ANXIETY
     Dosage: 20 MG DAILY
     Route: 048
  9. VENLAFAXINE HCL [Suspect]
     Indication: DEPRESSION
  10. KLONOPIN [Concomitant]
     Indication: ANXIETY
     Dosage: 2 MG DAILY
     Route: 048
  11. EFFEXOR XR [Concomitant]
     Dosage: 75 MG DAILY
     Route: 048
     Dates: end: 20110319
  12. EFFEXOR XR [Concomitant]
  13. LEXAPRO [Concomitant]
     Indication: DEPRESSION
  14. VENLAFAXINE HCL [Suspect]
     Dosage: UNK
  15. EFFEXOR XR [Suspect]
     Indication: ANXIETY
     Dosage: 75 MG, 1X/DAY

REACTIONS (2)
  - ANXIETY [None]
  - DEPRESSION [None]
